FAERS Safety Report 7164390-1 (Version None)
Quarter: 2010Q4

REPORT INFORMATION
  Report Type: 
  Country: None (occurrence: None)
  Receive Date: 20101215
  Receipt Date: 20101207
  Transmission Date: 20110411
  Serious: Yes (Other)
  Sender: FDA-Public Use
  Company Number: FR-NOVOPROD-318896

PATIENT
  Age: 63 Year
  Sex: Male
  Weight: 103 kg

DRUGS (9)
  1. VICTOZA [Suspect]
     Indication: TYPE 2 DIABETES MELLITUS
     Dosage: 1.2 MG, QD
     Route: 058
     Dates: start: 20100706, end: 20101013
  2. LANTUS [Concomitant]
     Dosage: UNK
     Dates: start: 20050208
  3. METFORMIN [Concomitant]
     Dosage: UNK
     Dates: start: 19980101
  4. NOVONORM [Concomitant]
     Dosage: UNK
     Dates: start: 20100401
  5. LOSAR                              /00661201/ [Concomitant]
     Dosage: UNK
     Dates: start: 20080604
  6. DILTIAZEM [Concomitant]
     Dosage: UNK
     Dates: start: 20080604
  7. TAHOR [Concomitant]
     Dosage: UNK
     Dates: start: 20080604
  8. HYPERIUM [Concomitant]
     Dosage: UNK
     Dates: start: 20090114
  9. KARDEGIC [Concomitant]
     Dosage: UNK
     Dates: start: 20080604

REACTIONS (1)
  - PANCYTOPENIA [None]
